FAERS Safety Report 23564877 (Version 1)
Quarter: 2024Q1

REPORT INFORMATION
  Report Type: Report from Study
  Country: US (occurrence: US)
  Receive Date: 20240226
  Receipt Date: 20240226
  Transmission Date: 20240409
  Serious: Yes (Other)
  Sender: FDA-Public Use
  Company Number: US-ARGENX-2024-ARGX-US000055

PATIENT

DRUGS (2)
  1. VYVGART [Suspect]
     Active Substance: EFGARTIGIMOD ALFA-FCAB
     Indication: Myasthenia gravis
     Dosage: 10 MG/KG
     Route: 042
     Dates: start: 20221229
  2. SOLU-MEDROL [Concomitant]
     Active Substance: METHYLPREDNISOLONE SODIUM SUCCINATE
     Indication: Product used for unknown indication
     Dosage: UNK
     Route: 042
     Dates: start: 20231229

REACTIONS (12)
  - Retinal exudates [Recovered/Resolved]
  - Rhinorrhoea [Recovering/Resolving]
  - Hypertension [Recovered/Resolved]
  - Eye disorder [Recovered/Resolved]
  - Cough [Recovered/Resolved]
  - Swelling [Recovered/Resolved]
  - Inguinal mass [Recovered/Resolved]
  - Abdominal hernia [Unknown]
  - Eye pain [Unknown]
  - Blepharospasm [Unknown]
  - Headache [Recovering/Resolving]
  - Eye swelling [Unknown]
